FAERS Safety Report 7343101-0 (Version None)
Quarter: 2011Q1

REPORT INFORMATION
  Report Type: 
  Country: None (occurrence: None)
  Receive Date: 20110310
  Receipt Date: 20110225
  Transmission Date: 20110831
  Serious: Yes (Other)
  Sender: FDA-Public Use
  Company Number: US-ELI_LILLY_AND_COMPANY-US201103000085

PATIENT
  Sex: Male

DRUGS (2)
  1. EFFIENT [Suspect]
     Dates: start: 20110223
  2. REOPRO [Concomitant]
     Dates: start: 20110223

REACTIONS (1)
  - IN-STENT CORONARY ARTERY RESTENOSIS [None]
